FAERS Safety Report 4445879-2 (Version None)
Quarter: 2004Q3

REPORT INFORMATION
  Report Type: 
  Country: None (occurrence: None)
  Receive Date: 20040907
  Receipt Date: 20040824
  Transmission Date: 20050211
  Serious: Yes (Hospitalization)
  Sender: FDA-Public Use
  Company Number: 02100-JPN-04-0170

PATIENT
  Age: 74 Year
  Sex: Male

DRUGS (6)
  1. CILOSTAZOL [Suspect]
     Indication: CEREBRAL INFARCTION
     Dosage: 200 MG ORAL
     Route: 048
     Dates: start: 20040517, end: 20040603
  2. LOPERAMIDE HYDROCHLORIDE [Concomitant]
  3. HOCHU-EKKI-TO [Concomitant]
  4. ETIZOLAM [Concomitant]
  5. ESTAZOLAM [Concomitant]
  6. TAMSULOSIN HYDROCHLORIDE [Concomitant]

REACTIONS (3)
  - ATRIAL TACHYCARDIA [None]
  - RASH [None]
  - SINUS TACHYCARDIA [None]
